FAERS Safety Report 25863483 (Version 2)
Quarter: 2025Q4

REPORT INFORMATION
  Report Type: Spontaneous
  Country: US (occurrence: US)
  Receive Date: 20250930
  Receipt Date: 20251002
  Transmission Date: 20260118
  Serious: Yes (Other)
  Sender: RANBAXY
  Company Number: US-SUN PHARMACEUTICAL INDUSTRIES INC-2025R1-529277

PATIENT
  Age: 38 Year
  Sex: Female

DRUGS (1)
  1. PHENOBARBITAL [Suspect]
     Active Substance: PHENOBARBITAL
     Indication: Status epilepticus
     Dosage: UNK
     Route: 048

REACTIONS (3)
  - Encephalitis autoimmune [Recovering/Resolving]
  - Accidental exposure to product [Unknown]
  - Drug reaction with eosinophilia and systemic symptoms [Unknown]
